FAERS Safety Report 8137433-6 (Version None)
Quarter: 2012Q1

REPORT INFORMATION
  Report Type: 
  Country: None (occurrence: None)
  Receive Date: 20120215
  Receipt Date: 20120213
  Transmission Date: 20120608
  Serious: Yes (Hospitalization, Other)
  Sender: FDA-Public Use
  Company Number: AU-AMGEN-AUSSP2012009498

PATIENT
  Age: 91 Year
  Sex: Female

DRUGS (5)
  1. FLUOROURACIL [Concomitant]
  2. CYCLOPHOSPHAMIDE [Concomitant]
  3. NEULASTA [Suspect]
     Indication: CHEMOTHERAPY
  4. EPIRUBICIN [Concomitant]
  5. DOCETAXEL [Concomitant]

REACTIONS (3)
  - NEUTROPHIL COUNT INCREASED [None]
  - INFLAMMATORY BOWEL DISEASE [None]
  - COLITIS ULCERATIVE [None]
